FAERS Safety Report 17462776 (Version 1)
Quarter: 2020Q1

REPORT INFORMATION
  Report Type: Spontaneous
  Country: US (occurrence: US)
  Receive Date: 20200213
  Receipt Date: 20200213
  Transmission Date: 20200409
  Serious: Yes (Hospitalization)
  Sender: FDA-Public Use
  Company Number: None

PATIENT
  Age: 33 Year
  Sex: Male
  Weight: 71 kg

DRUGS (1)
  1. TRAMADOL (TRAMADOL HCL 50MG TAB) [Suspect]
     Active Substance: TRAMADOL HYDROCHLORIDE
     Indication: SEIZURE
     Dosage: UNKNOWN MG
     Route: 048
     Dates: start: 20190107, end: 20190107

REACTIONS (2)
  - Seizure [None]
  - Anticonvulsant drug level below therapeutic [None]

NARRATIVE: CASE EVENT DATE: 20190107
